FAERS Safety Report 21295757 (Version 1)
Quarter: 2022Q3

REPORT INFORMATION
  Report Type: Spontaneous
  Country: DE (occurrence: DE)
  Receive Date: 20220906
  Receipt Date: 20220906
  Transmission Date: 20221026
  Serious: Yes (Hospitalization)
  Sender: FDA-Public Use
  Company Number: DE-KRKA-DE2022K10058SPO

PATIENT
  Age: 83 Year
  Sex: Male
  Weight: 70 kg

DRUGS (8)
  1. NEBIVOLOL [Suspect]
     Active Substance: NEBIVOLOL
     Indication: Product used for unknown indication
     Dosage: UNK, ASSEMD OVERDOSE
     Route: 048
     Dates: start: 20220811, end: 20220811
  2. NEBIVOLOL [Suspect]
     Active Substance: NEBIVOLOL
     Dosage: UNK
     Route: 065
  3. RISPERIDONE [Suspect]
     Active Substance: RISPERIDONE
     Indication: Product used for unknown indication
     Dosage: UNK, ASSEMD OVERDOSE
     Route: 048
     Dates: start: 20220811, end: 20220811
  4. RISPERIDONE [Suspect]
     Active Substance: RISPERIDONE
     Dosage: UNK
     Route: 065
  5. TAMSULOSIN HYDROCHLORIDE [Suspect]
     Active Substance: TAMSULOSIN HYDROCHLORIDE
     Indication: Product used for unknown indication
     Dosage: UNK
     Route: 048
  6. TAMSULOSIN HYDROCHLORIDE [Suspect]
     Active Substance: TAMSULOSIN HYDROCHLORIDE
     Dosage: UNK, ASSEMD OVERDOSE
     Route: 065
     Dates: start: 20220811, end: 20220811
  7. CANDESARTAN CILEXETIL [Suspect]
     Active Substance: CANDESARTAN CILEXETIL
     Indication: Product used for unknown indication
     Dosage: UNK
     Route: 048
  8. CANDESARTAN CILEXETIL [Suspect]
     Active Substance: CANDESARTAN CILEXETIL
     Dosage: UNK, ASSEMD OVERDOSE
     Route: 065
     Dates: start: 20220811, end: 20220811

REACTIONS (2)
  - Blood pressure increased [Unknown]
  - Overdose [Unknown]

NARRATIVE: CASE EVENT DATE: 20220811
